FAERS Safety Report 16290199 (Version 1)
Quarter: 2019Q2

REPORT INFORMATION
  Report Type: Spontaneous
  Country: US (occurrence: US)
  Receive Date: 20190508
  Receipt Date: 20190508
  Transmission Date: 20190711
  Serious: Yes (Other)
  Sender: FDA-Public Use
  Company Number: None

PATIENT
  Age: 55 Year
  Sex: Female
  Weight: 66.6 kg

DRUGS (7)
  1. MELOXICAM. [Suspect]
     Active Substance: MELOXICAM
     Indication: ARTHRITIS
     Dosage: ?          QUANTITY:1 TABLET(S);?
     Route: 048
     Dates: start: 20190502, end: 20190505
  2. MINOCYCLINE [Concomitant]
     Active Substance: MINOCYCLINE\MINOCYCLINE HYDROCHLORIDE
  3. URSODIOL. [Concomitant]
     Active Substance: URSODIOL
  4. PROBIOTIC [Concomitant]
     Active Substance: PROBIOTICS NOS
  5. IBUPROFEN. [Concomitant]
     Active Substance: IBUPROFEN
  6. MEGA B- C - CALCIUM - GLUCOSAMINE CHON MSM - ALPHA LIPOIC/ACETYL I CARN [Concomitant]
  7. BIOTIN [Concomitant]
     Active Substance: BIOTIN

REACTIONS (7)
  - Insomnia [None]
  - Pruritus [None]
  - Dehydration [None]
  - Nasal congestion [None]
  - Dry mouth [None]
  - Palpitations [None]
  - Feeling hot [None]

NARRATIVE: CASE EVENT DATE: 20190505
